FAERS Safety Report 17204711 (Version 1)
Quarter: 2019Q4

REPORT INFORMATION
  Report Type: Report from Study
  Country: None (occurrence: AU)
  Receive Date: 20191226
  Receipt Date: 20191226
  Transmission Date: 20200122
  Serious: Yes (Hospitalization, Disabling)
  Sender: FDA-Public Use
  Company Number: AU-ABBVIE-19K-008-3207893-00

PATIENT
  Sex: Male

DRUGS (1)
  1. DUODOPA [Suspect]
     Active Substance: CARBIDOPA\LEVODOPA
     Indication: MULTIPLE SYSTEM ATROPHY
     Route: 050
     Dates: start: 20180829

REACTIONS (5)
  - Bladder catheterisation [Unknown]
  - Catheter site thrombosis [Recovering/Resolving]
  - General physical health deterioration [Not Recovered/Not Resolved]
  - Pulmonary thrombosis [Recovering/Resolving]
  - Hypokinesia [Unknown]

NARRATIVE: CASE EVENT DATE: 2019
